FAERS Safety Report 15691229 (Version 1)
Quarter: 2018Q4

REPORT INFORMATION
  Report Type: Spontaneous
  Country: US (occurrence: US)
  Receive Date: 20181205
  Receipt Date: 20181205
  Transmission Date: 20190205
  Serious: No
  Sender: FDA-Public Use
  Company Number: US-SA-2018SA331034

PATIENT
  Age: 90 Year
  Sex: Male

DRUGS (2)
  1. GAVISCON [Suspect]
     Active Substance: ALUMINUM HYDROXIDE\MAGNESIUM CARBONATE
     Dosage: UNK
     Route: 065
  2. GAVISCON [ALGINIC ACID;ALUMINIUM HYDROXIDE] [Suspect]
     Active Substance: ALGINIC ACID\ALUMINUM HYDROXIDE
     Route: 048

REACTIONS (4)
  - Wrong technique in device usage process [Unknown]
  - Expired product administered [Unknown]
  - Product use in unapproved indication [Unknown]
  - Inappropriate schedule of product administration [Unknown]
